FAERS Safety Report 23505189 (Version 1)
Quarter: 2024Q1

REPORT INFORMATION
  Report Type: Spontaneous
  Country: US (occurrence: US)
  Receive Date: 20240209
  Receipt Date: 20240209
  Transmission Date: 20240409
  Serious: No
  Sender: FDA-Public Use
  Company Number: US-BRISTOL-MYERS SQUIBB COMPANY-2024-021394

PATIENT
  Age: 60 Year
  Sex: Male
  Weight: 98.43 kg

DRUGS (1)
  1. POMALYST [Suspect]
     Active Substance: POMALIDOMIDE
     Indication: Plasma cell myeloma
     Dosage: FREQUENCY: 3W ON 1W OFF
     Route: 048
     Dates: start: 20231001

REACTIONS (2)
  - Nausea [Unknown]
  - Diarrhoea [Unknown]
